FAERS Safety Report 10253178 (Version 1)
Quarter: 2014Q2

REPORT INFORMATION
  Report Type: Spontaneous
  Country: US (occurrence: US)
  Receive Date: 20140623
  Receipt Date: 20140623
  Transmission Date: 20141212
  Serious: Yes (Other)
  Sender: FDA-Public Use
  Company Number: US-BRISTOL-MYERS SQUIBB COMPANY-20999892

PATIENT
  Sex: Male

DRUGS (2)
  1. ERBITUX [Suspect]
  2. IRINOTECAN [Suspect]

REACTIONS (3)
  - Flatulence [Unknown]
  - Diarrhoea [Unknown]
  - Insomnia [Unknown]
